FAERS Safety Report 17257589 (Version 7)
Quarter: 2021Q3

REPORT INFORMATION
  Report Type: Spontaneous
  Country: US (occurrence: US)
  Receive Date: 20200110
  Receipt Date: 20210927
  Transmission Date: 20211014
  Serious: Yes (Other)
  Sender: FDA-Public Use
  Company Number: US-PFIZER INC-2020011260

PATIENT
  Age: 58 Year
  Sex: Female

DRUGS (6)
  1. METHOTREXATE. [Concomitant]
     Active Substance: METHOTREXATE
     Dosage: UNK
  2. XELJANZ XR [Suspect]
     Active Substance: TOFACITINIB CITRATE
     Dosage: 11 MG, ONCE A DAY
     Route: 048
     Dates: start: 201912
  3. XELJANZ XR [Suspect]
     Active Substance: TOFACITINIB CITRATE
     Dosage: 11 MG, ONCE A DAY
     Route: 048
     Dates: start: 20200516
  4. CYMBALTA [Concomitant]
     Active Substance: DULOXETINE HYDROCHLORIDE
     Dosage: UNK
  5. XELJANZ XR [Suspect]
     Active Substance: TOFACITINIB CITRATE
     Indication: RHEUMATOID ARTHRITIS
     Dosage: 11 MG, ONCE A DAY
     Route: 048
     Dates: start: 20191002
  6. CELEBREX [Concomitant]
     Active Substance: CELECOXIB
     Dosage: UNK

REACTIONS (5)
  - Hepatic enzyme increased [Unknown]
  - Therapeutic response unexpected [Unknown]
  - Fatigue [Not Recovered/Not Resolved]
  - Product dose omission in error [Unknown]
  - Ear infection bacterial [Recovering/Resolving]

NARRATIVE: CASE EVENT DATE: 2019
